FAERS Safety Report 4380015-2 (Version None)
Quarter: 2004Q2

REPORT INFORMATION
  Report Type: 
  Country: None (occurrence: None)
  Receive Date: 20040614
  Receipt Date: 20040225
  Transmission Date: 20050107
  Serious: No
  Sender: FDA-Public Use
  Company Number: 2004-BP-01433BP(0)

PATIENT
  Age: 76 Year
  Sex: Male
  Weight: 84.4 kg

DRUGS (4)
  1. SPIRIVA [Suspect]
     Indication: CHRONIC OBSTRUCTIVE AIRWAYS DISEASE
     Dosage: 18 MCG (18 MCG, 1 IN 1 D), IH
     Dates: start: 20040101
  2. COMBIVENT [Concomitant]
  3. LISINOPRIL [Concomitant]
  4. SEREVENT DISKUS (SALMETEROL XINAFOATE) [Concomitant]

REACTIONS (6)
  - DRY MOUTH [None]
  - FLATULENCE [None]
  - INCREASED UPPER AIRWAY SECRETION [None]
  - KERATOCONJUNCTIVITIS SICCA [None]
  - THERAPEUTIC RESPONSE DECREASED [None]
  - URINE FLOW DECREASED [None]
